FAERS Safety Report 4688739-4 (Version None)
Quarter: 2005Q2

REPORT INFORMATION
  Report Type: 
  Country: None (occurrence: None)
  Receive Date: 20050613
  Receipt Date: 20050603
  Transmission Date: 20051028
  Serious: Yes (Other)
  Sender: FDA-Public Use
  Company Number: PHBS2005JP08091

PATIENT
  Age: 24 Year
  Sex: Male

DRUGS (1)
  1. VOLTAREN [Suspect]
     Dosage: 75 MG/DAY
     Route: 048
     Dates: end: 20050501

REACTIONS (1)
  - NEUROLEPTIC MALIGNANT SYNDROME [None]
